FAERS Safety Report 16599069 (Version 1)
Quarter: 2019Q3

REPORT INFORMATION
  Report Type: Spontaneous
  Country: US (occurrence: US)
  Receive Date: 20190719
  Receipt Date: 20190719
  Transmission Date: 20191004
  Serious: Yes (Hospitalization, Other)
  Sender: FDA-Public Use
  Company Number: US-ASTRAZENECA-2019SF02335

PATIENT
  Age: 45 Year
  Sex: Female

DRUGS (1)
  1. SEROQUEL [Suspect]
     Active Substance: QUETIAPINE FUMARATE
     Indication: SCHIZOPHRENIA
     Route: 048

REACTIONS (7)
  - Leukocytosis [Unknown]
  - Tachycardia [Unknown]
  - Gastrointestinal haemorrhage [Unknown]
  - Unresponsive to stimuli [Unknown]
  - Suicidal ideation [Unknown]
  - Sepsis [Unknown]
  - End stage renal disease [Unknown]

NARRATIVE: CASE EVENT DATE: 20190709
